FAERS Safety Report 22199389 (Version 2)
Quarter: 2023Q2

REPORT INFORMATION
  Report Type: Spontaneous
  Country: US (occurrence: None)
  Receive Date: 20230412
  Receipt Date: 20230522
  Transmission Date: 20230721
  Serious: Yes (Other)
  Sender: FDA-Public Use
  Company Number: 2023A082698

PATIENT
  Age: 25481 Day
  Sex: Female

DRUGS (1)
  1. BYDUREON BCISE [Suspect]
     Active Substance: EXENATIDE
     Indication: Systemic lupus erythematosus
     Route: 058
     Dates: start: 201810

REACTIONS (5)
  - Hepatitis [Unknown]
  - Diabetes mellitus [Unknown]
  - Autoimmune disorder [Unknown]
  - Device leakage [Unknown]
  - Incorrect dose administered by device [Unknown]

NARRATIVE: CASE EVENT DATE: 20230407
